FAERS Safety Report 11972054 (Version 2)
Quarter: 2016Q1

REPORT INFORMATION
  Report Type: Report from Study
  Country: AU (occurrence: AU)
  Receive Date: 20160128
  Receipt Date: 20160304
  Transmission Date: 20160526
  Serious: Yes (Other)
  Sender: FDA-Public Use
  Company Number: PHHY2015AU001714

PATIENT
  Age: 60 Year
  Sex: Female

DRUGS (3)
  1. TASIGNA [Suspect]
     Active Substance: NILOTINIB
     Indication: CHRONIC MYELOID LEUKAEMIA
     Dosage: 200 MG, BID
     Route: 065
     Dates: start: 201004
  2. TASIGNA [Interacting]
     Active Substance: NILOTINIB
     Dosage: 400 MG, BID
     Route: 065
  3. EXEMESTANE. [Interacting]
     Active Substance: EXEMESTANE
     Indication: BREAST CANCER
     Dosage: 25 MG, UNK
     Route: 065
     Dates: start: 201103, end: 201510

REACTIONS (9)
  - Blood bilirubin abnormal [Unknown]
  - Urinary tract infection [Unknown]
  - Hepatic steatosis [Unknown]
  - Liver disorder [Unknown]
  - Infection [Unknown]
  - Malaise [Unknown]
  - Cytogenetic analysis abnormal [Recovering/Resolving]
  - Drug interaction [Unknown]
  - Thrombocytopenia [Recovered/Resolved]

NARRATIVE: CASE EVENT DATE: 20150818
